FAERS Safety Report 8475930-4 (Version None)
Quarter: 2012Q2

REPORT INFORMATION
  Report Type: 
  Country: None (occurrence: None)
  Receive Date: 20120628
  Receipt Date: 20120618
  Transmission Date: 20120825
  Serious: Yes (Hospitalization, Other)
  Sender: FDA-Public Use
  Company Number: US-WATSON-2012-11064

PATIENT
  Sex: Female

DRUGS (11)
  1. METFORMIN HCL [Suspect]
     Indication: PRODUCT USED FOR UNKNOWN INDICATION
     Dosage: 500 MG, UNK
     Route: 065
     Dates: start: 20120509, end: 20120501
  2. LISINOPRIL [Suspect]
     Indication: PRODUCT USED FOR UNKNOWN INDICATION
     Dosage: 20 MG, UNK
     Route: 065
     Dates: start: 20120509, end: 20120501
  3. CITALOPRAM HYDROBROMIDE [Suspect]
     Indication: PRODUCT USED FOR UNKNOWN INDICATION
     Dosage: 20 MG, UNK
     Route: 065
     Dates: start: 20120509, end: 20120501
  4. LORAZEPAM [Suspect]
     Indication: ANXIETY
     Dosage: 1 MG, UNK
     Route: 065
     Dates: start: 20120513, end: 20120516
  5. HYDROCHLOROTHIAZIDE [Suspect]
     Indication: PRODUCT USED FOR UNKNOWN INDICATION
     Dosage: 25 MG, UNK
     Route: 065
     Dates: start: 20120509, end: 20120501
  6. ISOSORBIDE MONONITRATE [Suspect]
     Indication: PRODUCT USED FOR UNKNOWN INDICATION
     Dosage: 60 MG, UNK
     Route: 065
     Dates: start: 20120509, end: 20120501
  7. OMEPRAZOLE [Suspect]
     Indication: PRODUCT USED FOR UNKNOWN INDICATION
     Dosage: 20 MG, UNK
     Route: 065
     Dates: start: 20120509, end: 20120501
  8. AMLODIPINE [Suspect]
     Indication: PRODUCT USED FOR UNKNOWN INDICATION
     Dosage: 10 MG, UNK
     Route: 065
     Dates: start: 20120509, end: 20120501
  9. PRAVASTATIN SODIUM [Suspect]
     Indication: CORONARY ARTERY DISEASE
     Dosage: 40 MG, QHS
     Route: 048
     Dates: start: 20120516
  10. PRAVASTATIN SODIUM [Suspect]
     Dosage: 40 MG, QHS
     Route: 048
     Dates: end: 20120515
  11. LEVOTHYROXINE SODIUM [Suspect]
     Indication: PRODUCT USED FOR UNKNOWN INDICATION
     Dosage: 100 MG, UNK
     Route: 065
     Dates: start: 20120509, end: 20120501

REACTIONS (1)
  - LOSS OF CONSCIOUSNESS [None]
